FAERS Safety Report 18868385 (Version 1)
Quarter: 2021Q1

REPORT INFORMATION
  Report Type: Spontaneous
  Country: PG (occurrence: PG)
  Receive Date: 20210209
  Receipt Date: 20210209
  Transmission Date: 20210420
  Serious: Yes (Death)
  Sender: FDA-Public Use
  Company Number: PG-JNJFOC-20210208471

PATIENT
  Sex: Female
  Weight: 53 kg

DRUGS (6)
  1. BEDAQUILINE [Suspect]
     Active Substance: BEDAQUILINE
     Route: 048
     Dates: start: 2020, end: 20201109
  2. BEDAQUILINE [Suspect]
     Active Substance: BEDAQUILINE
     Indication: PULMONARY TUBERCULOSIS
     Route: 048
     Dates: start: 20200530, end: 2020
  3. LEVOFLOXACIN. [Suspect]
     Active Substance: LEVOFLOXACIN
     Indication: PULMONARY TUBERCULOSIS
     Route: 048
     Dates: start: 20200530
  4. LINEZOLID. [Suspect]
     Active Substance: LINEZOLID
     Indication: PULMONARY TUBERCULOSIS
     Route: 048
     Dates: start: 20200530, end: 20210118
  5. LINEZOLID. [Suspect]
     Active Substance: LINEZOLID
     Route: 065
     Dates: start: 20210118
  6. CLOFAZIMINE [Suspect]
     Active Substance: CLOFAZIMINE
     Indication: PULMONARY TUBERCULOSIS
     Route: 048
     Dates: start: 20200530

REACTIONS (2)
  - Death [Fatal]
  - Anaemia [Recovering/Resolving]

NARRATIVE: CASE EVENT DATE: 20201123
